FAERS Safety Report 5713204-2 (Version None)
Quarter: 2008Q2

REPORT INFORMATION
  Report Type: 
  Country: None (occurrence: None)
  Receive Date: 20080422
  Receipt Date: 19951130
  Transmission Date: 20081010
  Serious: Yes (Death, Other)
  Sender: FDA-Public Use
  Company Number: DE-ROCHE-54635

PATIENT
  Age: 42 Year
  Sex: Male
  Weight: 65 kg

DRUGS (8)
  1. ZALCITABINE [Suspect]
     Indication: HIV INFECTION
     Route: 048
     Dates: start: 19940526, end: 19950501
  2. ZALCITABINE [Suspect]
     Route: 048
     Dates: start: 19940225, end: 19940525
  3. AZT [Concomitant]
     Indication: HIV INFECTION
     Route: 065
     Dates: start: 19940225
  4. PENTACARINAT [Concomitant]
     Route: 065
     Dates: start: 19940224
  5. BLEOMYCIN/VINCRISTINE [Concomitant]
     Indication: KAPOSI'S SARCOMA
     Route: 065
     Dates: start: 19940810
  6. BLEOMYCIN/VINCRISTINE [Concomitant]
     Route: 065
     Dates: start: 19940902
  7. BLEOMYCIN/VINCRISTINE [Concomitant]
     Route: 065
     Dates: start: 19940810
  8. BLEOMYCIN/VINCRISTINE [Concomitant]
     Route: 065
     Dates: start: 19940902

REACTIONS (5)
  - DEATH [None]
  - DIARRHOEA [None]
  - MYCOBACTERIAL INFECTION [None]
  - OESOPHAGEAL CANDIDIASIS [None]
  - WEIGHT DECREASED [None]
